FAERS Safety Report 9951849 (Version 1)
Quarter: 2014Q1

REPORT INFORMATION
  Report Type: Report from Study
  Country: US (occurrence: US)
  Receive Date: 20140304
  Receipt Date: 20140304
  Transmission Date: 20141002
  Serious: No
  Sender: FDA-Public Use
  Company Number: US-ABBVIE-13P-163-1075759-00

PATIENT
  Age: 47 Year
  Sex: Female
  Weight: 35.41 kg

DRUGS (6)
  1. HUMIRA [Suspect]
     Indication: CROHN^S DISEASE
     Dates: start: 201106, end: 201205
  2. AZATHIOPRINE [Concomitant]
     Indication: CROHN^S DISEASE
  3. METOPROLOL [Concomitant]
     Indication: HYPERTENSION
  4. DICYCLOMINE [Concomitant]
     Indication: CROHN^S DISEASE
  5. ALLEGRA [Concomitant]
     Indication: HYPERSENSITIVITY
  6. TRAMADOL [Concomitant]
     Indication: PAIN

REACTIONS (3)
  - Throat irritation [Not Recovered/Not Resolved]
  - Body temperature increased [Recovered/Resolved]
  - Arthralgia [Not Recovered/Not Resolved]
